FAERS Safety Report 6719872-0 (Version None)
Quarter: 2010Q2

REPORT INFORMATION
  Report Type: 
  Country: None (occurrence: None)
  Receive Date: 20100511
  Receipt Date: 20100507
  Transmission Date: 20101027
  Serious: Yes (Death, Other)
  Sender: FDA-Public Use
  Company Number: PHHY2010MX24409

PATIENT
  Age: 95 Year
  Sex: Female

DRUGS (1)
  1. ACLASTA [Suspect]
     Indication: OSTEOPOROSIS
     Dosage: 5 MG/100 ML
     Route: 042
     Dates: start: 20080715

REACTIONS (7)
  - DEPRESSION [None]
  - EXTERNAL FIXATION OF FRACTURE [None]
  - FALL [None]
  - LOWER LIMB FRACTURE [None]
  - RENAL FAILURE [None]
  - RENAL INJURY [None]
  - URINARY TRACT INFECTION [None]
